FAERS Safety Report 14752150 (Version 2)
Quarter: 2018Q4

REPORT INFORMATION
  Report Type: Spontaneous
  Country: US (occurrence: US)
  Receive Date: 20180412
  Receipt Date: 20181012
  Transmission Date: 20190204
  Serious: No
  Sender: FDA-Public Use
  Company Number: US-PFIZER INC-2018146961

PATIENT
  Age: 74 Year
  Sex: Female
  Weight: 69.85 kg

DRUGS (2)
  1. XALKORI [Suspect]
     Active Substance: CRIZOTINIB
     Dosage: 2 DF, 1X/DAY
     Route: 048
     Dates: start: 20181002
  2. XALKORI [Suspect]
     Active Substance: CRIZOTINIB
     Indication: LUNG NEOPLASM MALIGNANT
     Dosage: 250 MG, 1X/DAY
     Route: 048

REACTIONS (3)
  - Hypoacusis [Unknown]
  - Product dose omission [Recovered/Resolved]
  - Accidental overdose [Unknown]

NARRATIVE: CASE EVENT DATE: 201808
